FAERS Safety Report 8925084 (Version 1)
Quarter: 2012Q4

REPORT INFORMATION
  Report Type: Spontaneous
  Country: GB (occurrence: None)
  Receive Date: 20121116
  Receipt Date: 20121116
  Transmission Date: 20130627
  Serious: Yes (Other)
  Sender: FDA-Public Use
  Company Number: DSA_60860_2012

PATIENT

DRUGS (2)
  1. METRONIDAZOLE [Suspect]
     Indication: ABDOMINAL ABSCESS
     Dosage: (DF)
  2. AFINITOR [Suspect]
     Indication: PRODUCT USED FOR UNKNOWN INDICATION
     Dosage: (DF)

REACTIONS (2)
  - Abdominal abscess [None]
  - Drug interaction [None]
